FAERS Safety Report 11049376 (Version 2)
Quarter: 2015Q2

REPORT INFORMATION
  Report Type: Spontaneous
  Country: US (occurrence: US)
  Receive Date: 20150420
  Receipt Date: 20150603
  Transmission Date: 20150821
  Serious: Yes (Other)
  Sender: FDA-Public Use
  Company Number: US-BAYER-2015-127860

PATIENT
  Age: 29 Year
  Sex: Female
  Weight: 97.96 kg

DRUGS (1)
  1. MIRENA [Suspect]
     Active Substance: LEVONORGESTREL
     Indication: CONTRACEPTION
     Dosage: 20 MCG/24HR, CONT
     Route: 015
     Dates: start: 20150219, end: 20150219

REACTIONS (3)
  - Complication of device insertion [None]
  - Embedded device [Recovered/Resolved]
  - Device difficult to use [None]

NARRATIVE: CASE EVENT DATE: 20150219
